FAERS Safety Report 23035904 (Version 1)
Quarter: 2023Q4

REPORT INFORMATION
  Report Type: Spontaneous
  Country: JP (occurrence: JP)
  Receive Date: 20231006
  Receipt Date: 20231006
  Transmission Date: 20240110
  Serious: Yes (Other)
  Sender: FDA-Public Use
  Company Number: JP-Accord-382225

PATIENT
  Age: 76 Year
  Sex: Female

DRUGS (1)
  1. CISPLATIN [Suspect]
     Active Substance: CISPLATIN
     Indication: Squamous cell carcinoma of the tongue
     Dosage: 5 ML/MIN

REACTIONS (3)
  - Stomatitis [Recovering/Resolving]
  - Dermatitis [Recovering/Resolving]
  - Neutropenia [Recovering/Resolving]
